FAERS Safety Report 4746466-9 (Version None)
Quarter: 2005Q3

REPORT INFORMATION
  Report Type: 
  Country: None (occurrence: None)
  Receive Date: 20050815
  Receipt Date: 20050805
  Transmission Date: 20060218
  Serious: Yes (Hospitalization, Other)
  Sender: FDA-Public Use
  Company Number: 2005-08-0469

PATIENT
  Age: 46 Year
  Sex: Female
  Weight: 50 kg

DRUGS (2)
  1. PEG-INTRON [Suspect]
     Indication: HEPATITIS C
     Dosage: 80 MCG QW SUBCUTANEOUS
     Route: 058
     Dates: start: 20041201
  2. REBETOL [Suspect]
     Indication: HEPATITIS C
     Dosage: 600 MG ORAL
     Route: 048
     Dates: start: 20041201

REACTIONS (2)
  - BREAST CANCER FEMALE [None]
  - IMPAIRED HEALING [None]
